FAERS Safety Report 6231753-8 (Version None)
Quarter: 2009Q2

REPORT INFORMATION
  Report Type: 
  Country: None (occurrence: None)
  Receive Date: 20090616
  Receipt Date: 20090603
  Transmission Date: 20091009
  Serious: Yes (Other)
  Sender: FDA-Public Use
  Company Number: US-ELI_LILLY_AND_COMPANY-US200906000867

PATIENT
  Sex: Male

DRUGS (2)
  1. ZYPREXA [Suspect]
     Indication: HALLUCINATIONS, MIXED
  2. SEROQUEL [Concomitant]
     Dates: start: 20010101

REACTIONS (4)
  - BREAST CANCER [None]
  - BREAST MASS [None]
  - DIABETES MELLITUS [None]
  - GYNAECOMASTIA [None]
